FAERS Safety Report 4540227-1 (Version None)
Quarter: 2004Q4

REPORT INFORMATION
  Report Type: 
  Country: None (occurrence: None)
  Receive Date: 20041223
  Receipt Date: 20041220
  Transmission Date: 20050328
  Serious: Yes (Hospitalization)
  Sender: FDA-Public Use
  Company Number: 430045M04USA

PATIENT
  Age: 48 Year
  Sex: Female
  Weight: 69.4003 kg

DRUGS (5)
  1. NOVANTRONE [Suspect]
     Indication: MULTIPLE SCLEROSIS
     Dosage: 17 MG, ONCE, NOT REPORTED
     Dates: start: 20030718, end: 20030718
  2. NOVANTRONE [Suspect]
     Indication: MULTIPLE SCLEROSIS
     Dosage: 17 MG, ONCE, NOT REPORTED
     Dates: start: 20031230, end: 20031230
  3. NOVANTRONE [Suspect]
     Indication: MULTIPLE SCLEROSIS
     Dosage: 17 MG, ONCE, NOT REPORTED
     Dates: start: 20040330, end: 20040330
  4. NOVANTRONE [Suspect]
     Indication: MULTIPLE SCLEROSIS
     Dosage: 17 MG, ONCE, NOT REPORTED
     Dates: start: 20040630, end: 20040630
  5. NOVANTRONE [Suspect]
     Indication: MULTIPLE SCLEROSIS
     Dosage: 15 MG, ONCE, NOT REPORTED
     Dates: start: 20041007, end: 20041007

REACTIONS (2)
  - CARDIAC FAILURE CONGESTIVE [None]
  - CARDIOMYOPATHY [None]
